FAERS Safety Report 17808552 (Version 1)
Quarter: 2020Q2

REPORT INFORMATION
  Report Type: Other
  Country: CN (occurrence: CN)
  Receive Date: 20200520
  Receipt Date: 20200520
  Transmission Date: 20200714
  Serious: Yes (Hospitalization, Other)
  Sender: FDA-Public Use
  Company Number: CN-DEXPHARM-20200359

PATIENT
  Age: 28 Year
  Sex: Male

DRUGS (23)
  1. MEROPENEM. [Concomitant]
     Active Substance: MEROPENEM
  2. VANCOMYCIN [Concomitant]
     Active Substance: VANCOMYCIN
     Dosage: 24H CONTINUOUS PUMPING
  3. IMIPENEM AND CILASTATIN [Suspect]
     Active Substance: CILASTATIN SODIUM\IMIPENEM
  4. OMEPRAZOLE- NOT DEXCEL^S PRODUCT [Suspect]
     Active Substance: OMEPRAZOLE
     Dosage: 40MG BID
     Route: 042
  5. TEICOPLANIN [Concomitant]
     Active Substance: TEICOPLANIN
  6. TIGECYCLINE. [Concomitant]
     Active Substance: TIGECYCLINE
  7. CASPOFUNGIN [Concomitant]
     Active Substance: CASPOFUNGIN
  8. LINEZOLID. [Concomitant]
     Active Substance: LINEZOLID
  9. FLUCONAZOLE. [Concomitant]
     Active Substance: FLUCONAZOLE
  10. TIGECYCLINE. [Concomitant]
     Active Substance: TIGECYCLINE
  11. VANCOMYCIN [Concomitant]
     Active Substance: VANCOMYCIN
     Dosage: 24H CONTINUOUS PUMPING
  12. METRONIDAZOLE. [Concomitant]
     Active Substance: METRONIDAZOLE
  13. CASPOFUNGIN [Concomitant]
     Active Substance: CASPOFUNGIN
  14. TIGECYCLINE. [Concomitant]
     Active Substance: TIGECYCLINE
  15. AMIKACIN. [Concomitant]
     Active Substance: AMIKACIN
  16. SULFAMETHOXAZOLE [Concomitant]
     Active Substance: SULFAMETHOXAZOLE
  17. VANCOMYCIN [Concomitant]
     Active Substance: VANCOMYCIN
  18. VANCOMYCIN [Concomitant]
     Active Substance: VANCOMYCIN
  19. VANCOMYCIN [Concomitant]
     Active Substance: VANCOMYCIN
     Dosage: 24H CONTINUOUS PUMPING
  20. FLUCONAZOLE. [Concomitant]
     Active Substance: FLUCONAZOLE
  21. CASPOFUNGIN [Concomitant]
     Active Substance: CASPOFUNGIN
  22. SODIUM BICARBONATE. [Concomitant]
     Active Substance: SODIUM BICARBONATE
  23. THYMALFASIN [Concomitant]
     Active Substance: THYMALFASIN

REACTIONS (1)
  - Stenotrophomonas infection [Recovering/Resolving]
